FAERS Safety Report 4712029-4 (Version None)
Quarter: 2005Q2

REPORT INFORMATION
  Report Type: 
  Country: None (occurrence: None)
  Receive Date: 20050629
  Receipt Date: 20050408
  Transmission Date: 20051028
  Serious: No
  Sender: FDA-Public Use
  Company Number: 05P-163-0296873-00

PATIENT
  Age: 46 Year
  Sex: Male
  Weight: 63.9572 kg

DRUGS (8)
  1. HUMIRA [Suspect]
     Indication: RHEUMATOID ARTHRITIS
     Dosage: 40 MG, 1 IN 2 WK, SUBCUTANEOUS
     Route: 058
     Dates: start: 20041001
  2. PREDNISONE [Concomitant]
  3. MELOXICAM [Concomitant]
  4. METHOTREXATE [Concomitant]
  5. FOLIC ACID [Concomitant]
  6. ESOMEPRAZOLE [Concomitant]
  7. VICODIN [Concomitant]
  8. GOODY TABLETS [Concomitant]

REACTIONS (2)
  - ARTHRALGIA [None]
  - WEIGHT DECREASED [None]
